FAERS Safety Report 5579207-6 (Version None)
Quarter: 2008Q1

REPORT INFORMATION
  Report Type: 
  Country: None (occurrence: None)
  Receive Date: 20080102
  Receipt Date: 20071228
  Transmission Date: 20080703
  Serious: Yes (Hospitalization)
  Sender: FDA-Public Use
  Company Number: B0501088A

PATIENT
  Age: 52 Year
  Sex: Male

DRUGS (3)
  1. BECOTIDE [Suspect]
     Indication: DRUG USE FOR UNKNOWN INDICATION
     Route: 055
     Dates: end: 20070719
  2. COSOPT [Concomitant]
     Route: 047
  3. MYDRIATICUM [Concomitant]

REACTIONS (6)
  - ANGIOEDEMA [None]
  - DYSPHAGIA [None]
  - DYSPNOEA [None]
  - EYE SWELLING [None]
  - FACE OEDEMA [None]
  - RASH [None]
